FAERS Safety Report 17154027 (Version 2)
Quarter: 2019Q4

REPORT INFORMATION
  Report Type: Spontaneous
  Country: US (occurrence: US)
  Receive Date: 20191213
  Receipt Date: 20191226
  Transmission Date: 20200122
  Serious: No
  Sender: FDA-Public Use
  Company Number: US-009507513-1911USA011547

PATIENT
  Sex: Female

DRUGS (1)
  1. GANIRELIX ACETATE INJECTION [Suspect]
     Active Substance: GANIRELIX ACETATE
     Dosage: DAILY
     Dates: start: 201911

REACTIONS (11)
  - Injection site bruising [Unknown]
  - Injection site mass [Unknown]
  - Injury associated with device [Unknown]
  - Manufacturing issue [Unknown]
  - Poor quality device used [Unknown]
  - Product dose omission [Unknown]
  - Circumstance or information capable of leading to medication error [Unknown]
  - Injection site scar [Unknown]
  - Injection site discomfort [Unknown]
  - Injection site pain [Unknown]
  - Device difficult to use [Unknown]

NARRATIVE: CASE EVENT DATE: 2019
